FAERS Safety Report 6970353-9 (Version None)
Quarter: 2010Q3

REPORT INFORMATION
  Report Type: 
  Country: None (occurrence: None)
  Receive Date: 20100908
  Receipt Date: 20090619
  Transmission Date: 20110219
  Serious: Yes (Other)
  Sender: FDA-Public Use
  Company Number: ES-BAXTER-2009BH006692

PATIENT
  Age: 11 Year
  Sex: Male
  Weight: 51 kg

DRUGS (3)
  1. FEIBA [Suspect]
     Indication: HAEMORRHAGE
     Route: 042
     Dates: start: 20090416, end: 20090416
  2. FEIBA [Suspect]
     Route: 042
     Dates: start: 20090417, end: 20090417
  3. FANHDI [Suspect]
     Indication: IMMUNE ENHANCEMENT THERAPY
     Route: 065
     Dates: start: 20090417, end: 20090417

REACTIONS (1)
  - TRANSFUSION REACTION [None]
